FAERS Safety Report 8448661-4 (Version None)
Quarter: 2012Q2

REPORT INFORMATION
  Report Type: 
  Country: None (occurrence: None)
  Receive Date: 20120619
  Receipt Date: 20120614
  Transmission Date: 20120825
  Serious: Yes (Hospitalization, Disabling, Other)
  Sender: FDA-Public Use
  Company Number: US-MERCK-1102USA01927

PATIENT
  Age: 64 Year
  Sex: Female
  Weight: 59 kg

DRUGS (3)
  1. FOSAMAX [Suspect]
     Indication: OSTEOPOROSIS
     Route: 048
     Dates: start: 19950101, end: 20051201
  2. BINOVA [Suspect]
     Route: 065
     Dates: start: 20060101, end: 20101010
  3. BONIVA [Suspect]
     Route: 065
     Dates: start: 20060101, end: 20101001

REACTIONS (14)
  - OSTEOARTHRITIS [None]
  - ANXIETY [None]
  - SYNOVIAL CYST [None]
  - FEAR [None]
  - FALL [None]
  - EMOTIONAL DISTRESS [None]
  - TRAUMATIC FRACTURE [None]
  - PAIN IN EXTREMITY [None]
  - BLOOD 1,25-DIHYDROXYCHOLECALCIFEROL DECREASED [None]
  - FEMUR FRACTURE [None]
  - LOW TURNOVER OSTEOPATHY [None]
  - ANHEDONIA [None]
  - PAIN [None]
  - MULTIPLE INJURIES [None]
